FAERS Safety Report 8545949-3 (Version None)
Quarter: 2012Q3

REPORT INFORMATION
  Report Type: 
  Country: None (occurrence: None)
  Receive Date: 20120727
  Receipt Date: 20111123
  Transmission Date: 20120928
  Serious: No
  Sender: FDA-Public Use
  Company Number: US-ASTRAZENECA-2011SE71329

PATIENT
  Age: 55 Year
  Sex: Male
  Weight: 136.1 kg

DRUGS (4)
  1. ASI FLEX [Concomitant]
     Indication: GASTROOESOPHAGEAL REFLUX DISEASE
  2. SEROQUEL [Suspect]
     Indication: SLEEP DISORDER
     Route: 048
     Dates: start: 20030101
  3. CIPROPRAM [Concomitant]
  4. PROMAX [Concomitant]

REACTIONS (2)
  - HEARING IMPAIRED [None]
  - DRUG PRESCRIBING ERROR [None]
